FAERS Safety Report 5627110-5 (Version None)
Quarter: 2008Q1

REPORT INFORMATION
  Report Type: 
  Country: None (occurrence: None)
  Receive Date: 20080129
  Receipt Date: 20070419
  Transmission Date: 20080703
  Serious: Yes (Hospitalization)
  Sender: FDA-Public Use
  Company Number: 8024969

PATIENT
  Age: 31 Year
  Sex: Female

DRUGS (7)
  1. KEPPRA [Suspect]
     Indication: EPILEPSY
     Dosage: PO
     Route: 048
     Dates: start: 20030525
  2. DEPAKOTE [Concomitant]
  3. BUTORPHANOL TARTRATE [Concomitant]
  4. PROZAC [Concomitant]
  5. REMERON [Concomitant]
  6. TRAZODONE /00447702/ [Concomitant]
  7. LITHIUM CARBONATE [Concomitant]

REACTIONS (1)
  - SUICIDE ATTEMPT [None]
